FAERS Safety Report 18821330 (Version 1)
Quarter: 2021Q1

REPORT INFORMATION
  Report Type: Spontaneous
  Country: CN (occurrence: CN)
  Receive Date: 20210201
  Receipt Date: 20210201
  Transmission Date: 20210419
  Serious: Yes (Other)
  Sender: FDA-Public Use
  Company Number: CN-PFIZER INC-2021072480

PATIENT
  Age: 55 Year
  Sex: Female

DRUGS (1)
  1. LINEZOLID. [Suspect]
     Active Substance: LINEZOLID
     Indication: FEBRILE INFECTION
     Dosage: 1 DF, Q12H (EVERY 12 HOURS)
     Route: 041
     Dates: start: 20201120, end: 20201123

REACTIONS (3)
  - Nausea [Recovered/Resolved]
  - Off label use [Unknown]
  - Haematemesis [Recovered/Resolved]

NARRATIVE: CASE EVENT DATE: 20201120
